FAERS Safety Report 25406825 (Version 3)
Quarter: 2025Q2

REPORT INFORMATION
  Report Type: Spontaneous
  Country: IR (occurrence: IR)
  Receive Date: 20250606
  Receipt Date: 20250620
  Transmission Date: 20250716
  Serious: Yes (Life-Threatening, Hospitalization, Other)
  Sender: PFIZER
  Company Number: IR-MLMSERVICE-20200220-2178426-1

PATIENT
  Age: 77 Year
  Sex: Female

DRUGS (2)
  1. METHOTREXATE [Suspect]
     Active Substance: METHOTREXATE
     Indication: Rheumatoid arthritis
     Dosage: 1 DF, 3X/DAY (ONCE A DAY, THREE TIMES PER DAY FOR DAYS)
     Route: 048
  2. GLYBURIDE [Concomitant]
     Active Substance: GLYBURIDE
     Indication: Diabetes mellitus

REACTIONS (12)
  - Platelet count decreased [Recovered/Resolved]
  - Toxicity to various agents [Recovered/Resolved]
  - Stomatitis [Recovered/Resolved]
  - Leukopenia [Recovered/Resolved]
  - Petechiae [Recovered/Resolved]
  - Blood creatinine increased [Recovered/Resolved]
  - Inappropriate schedule of product administration [Recovered/Resolved]
  - Pharyngeal inflammation [Recovered/Resolved]
  - Conjunctival hyperaemia [Recovered/Resolved]
  - Electrocardiogram T wave inversion [Recovered/Resolved]
  - Skin lesion [Recovered/Resolved]
  - Overdose [Unknown]
